FAERS Safety Report 8958491 (Version 1)
Quarter: 2012Q4

REPORT INFORMATION
  Report Type: Spontaneous
  Country: US (occurrence: None)
  Receive Date: 20121205
  Receipt Date: 20121205
  Transmission Date: 20130627
  Serious: Yes (Hospitalization, Disabling)
  Sender: FDA-Public Use
  Company Number: None

PATIENT
  Sex: Male
  Weight: 102.06 kg

DRUGS (2)
  1. BENZEDREX INHALER [Suspect]
     Indication: CARDIAC DISORDER
     Dosage: Prophelexadrine - taken internally STRONG
Just cotton from from  2 to 3 daily  mouth
Crystal Meth.  Stopped 5 yrs a time
     Route: 048
     Dates: start: 1975, end: 2012
  2. BENZEDREX INHALER [Suspect]
     Indication: CORONARY ARTERIAL STENT INSERTION
     Dosage: Prophelexadrine - taken internally STRONG
Just cotton from from  2 to 3 daily  mouth
Crystal Meth.  Stopped 5 yrs a time
     Route: 048
     Dates: start: 1975, end: 2012

REACTIONS (6)
  - Drug abuse [None]
  - Pain [None]
  - Spinal disorder [None]
  - Musculoskeletal disorder [None]
  - Urine analysis abnormal [None]
  - Asthenia [None]
